FAERS Safety Report 8604628-4 (Version None)
Quarter: 2012Q3

REPORT INFORMATION
  Report Type: 
  Country: None (occurrence: None)
  Receive Date: 20120820
  Receipt Date: 20120814
  Transmission Date: 20120928
  Serious: Yes (Hospitalization, Other)
  Sender: FDA-Public Use
  Company Number: PHHY2012NO050456

PATIENT
  Sex: Female

DRUGS (4)
  1. CLOZAPINE [Suspect]
     Indication: PSYCHOTIC DISORDER
     Dosage: 100 MG (25 + 75 MG)
     Route: 048
     Dates: start: 20120531, end: 20120605
  2. VALLERGAN [Concomitant]
     Indication: SOMNOLENCE
     Dosage: 80 MG
     Route: 048
     Dates: start: 20120309
  3. AFI-D2-FORTE [Concomitant]
     Dosage: UNK (1 CAPSULE PER WEEK)
     Dates: start: 20120601
  4. SEROQUEL [Concomitant]
     Dosage: 1000 MG (200 MG + 200 MG + 300 MG + 300 MG)
     Dates: start: 20120518

REACTIONS (6)
  - PYREXIA [None]
  - C-REACTIVE PROTEIN INCREASED [None]
  - ASPARTATE AMINOTRANSFERASE INCREASED [None]
  - ALANINE AMINOTRANSFERASE INCREASED [None]
  - INFLUENZA LIKE ILLNESS [None]
  - CHILLS [None]
